FAERS Safety Report 5908750-2 (Version None)
Quarter: 2008Q4

REPORT INFORMATION
  Report Type: 
  Country: None (occurrence: None)
  Receive Date: 20081006
  Receipt Date: 20081002
  Transmission Date: 20090506
  Serious: Yes (Other)
  Sender: FDA-Public Use
  Company Number: B0540149A

PATIENT
  Age: 29 Year
  Sex: Male
  Weight: 85 kg

DRUGS (1)
  1. AUGMENTIN '125' [Suspect]
     Indication: STAPHYLOCOCCAL SKIN INFECTION
     Dosage: 2G PER DAY
     Route: 048
     Dates: start: 20080928, end: 20080928

REACTIONS (7)
  - ARTHRALGIA [None]
  - EYE PAIN [None]
  - HEADACHE [None]
  - INSOMNIA [None]
  - MYALGIA [None]
  - PYREXIA [None]
  - VOMITING [None]
